FAERS Safety Report 7633899-6 (Version None)
Quarter: 2011Q3

REPORT INFORMATION
  Report Type: 
  Country: None (occurrence: None)
  Receive Date: 20110718
  Receipt Date: 20110704
  Transmission Date: 20111222
  Serious: Yes (Life-Threatening)
  Sender: FDA-Public Use
  Company Number: TCI2011A03813

PATIENT
  Age: 54 Year
  Sex: Male

DRUGS (5)
  1. NORVASC [Suspect]
     Indication: HYPERTENSION
     Dosage: 5 MG (5 MG, 1 IN 1 D) PER ORAL
     Route: 048
     Dates: start: 20090701
  2. LANSOPRAZOLE [Suspect]
     Indication: GASTROOESOPHAGEAL REFLUX DISEASE
     Dosage: 15 MG (15 MG, 1 IN 1 D) PER ORAL
     Route: 048
     Dates: start: 20050101, end: 20110101
  3. LANSOPRAZOLE [Suspect]
     Indication: GASTROOESOPHAGEAL REFLUX DISEASE
     Dosage: 15 MG (15 MG,1 IN 1 D)  PER ORAL
     Route: 048
     Dates: start: 20110101
  4. AMLODIPINE BESYLATE [Suspect]
     Indication: HYPERTENSION
     Dosage: PER ORAL
     Route: 048
     Dates: start: 20090501
  5. BLOPRESS TABLETS 4 (CANDESARTAN CILEXETIL) [Suspect]
     Dosage: 4 MG (4 MG, 1 IN 1 D) PER ORAL
     Route: 048
     Dates: start: 20100601

REACTIONS (11)
  - PROTEINURIA [None]
  - DRUG INEFFECTIVE [None]
  - OCCULT BLOOD [None]
  - HYPERTENSION [None]
  - EPISTAXIS [None]
  - LIVER DISORDER [None]
  - HYPOCALCAEMIA [None]
  - HYPERVENTILATION [None]
  - HYPOKALAEMIA [None]
  - HYPOPHOSPHATAEMIA [None]
  - TETANY [None]
